FAERS Safety Report 25369541 (Version 1)
Quarter: 2025Q2

REPORT INFORMATION
  Report Type: Spontaneous
  Country: GB (occurrence: GB)
  Receive Date: 20250528
  Receipt Date: 20250528
  Transmission Date: 20250716
  Serious: Yes (Other)
  Sender: MYLAN
  Company Number: GB-MHRA-TPP10711651C11562390YC1741254607440

PATIENT
  Age: 71 Year
  Sex: Female
  Weight: 59 kg

DRUGS (22)
  1. DOXYCYCLINE [Suspect]
     Active Substance: DOXYCYCLINE
     Indication: Cough
  2. DOXYCYCLINE [Suspect]
     Active Substance: DOXYCYCLINE
     Indication: Ill-defined disorder
     Dosage: 1 DOSAGE FORM, QD, ONE CAPSULE ONCE DAILY (REMAINDER OF THE COURSE)
     Dates: start: 20250307
  3. PREDNISOLONE [Concomitant]
     Active Substance: PREDNISOLONE
     Indication: Chronic obstructive pulmonary disease
     Dosage: 6 DOSAGE FORM, AM (TAKE 6 (SIX)  TABLETS EVERY MORNING AS A SINGLE DOSE FOR 5 DAYS (COPD FLARE-UP))
     Dates: start: 20250120
  4. PREDNISOLONE [Concomitant]
     Active Substance: PREDNISOLONE
     Indication: Ill-defined disorder
  5. ALBUTEROL [Concomitant]
     Active Substance: ALBUTEROL
     Indication: Ill-defined disorder
     Dosage: 2 DOSAGE FORM, QID (INHALE TWO DOSES FOUR TIMES A DAY WHEN REQUIRED)
     Dates: start: 20240603
  6. FAMOTIDINE [Concomitant]
     Active Substance: FAMOTIDINE
     Indication: Ill-defined disorder
     Dosage: 1 DOSAGE FORM, PM (TAKE ONE AT NIGHT FOR SIX WEEKS. STOP LANSOPRAZ...)
     Dates: start: 20250220
  7. AMITRIPTYLINE HYDROCHLORIDE [Concomitant]
     Active Substance: AMITRIPTYLINE HYDROCHLORIDE
     Indication: Ill-defined disorder
     Dosage: 1 DOSAGE FORM, PM (TAKE ONE AT NIGHT TIME)
     Dates: start: 20231002
  8. ASPIRIN [Concomitant]
     Active Substance: ASPIRIN
     Indication: Ill-defined disorder
     Dosage: 1 DOSAGE FORM, QD (TAKE ONE DAILY)
     Dates: start: 20231002
  9. BETAHISTINE [Concomitant]
     Active Substance: BETAHISTINE
     Indication: Ill-defined disorder
     Dosage: 1 DOSAGE FORM, BID (TAKE ONE TWICE A DAY)
     Dates: start: 20231002
  10. COCODAMOL [Concomitant]
     Active Substance: ACETAMINOPHEN\CODEINE PHOSPHATE
     Indication: Ill-defined disorder
     Dosage: UNK, QID (TAKE 1 OR 2 TABLETS 4 TIMES/DAY)
     Dates: start: 20231002
  11. LEVOTHYROXINE [Concomitant]
     Active Substance: LEVOTHYROXINE
     Indication: Ill-defined disorder
     Dosage: UNK, QD (ONCE DAILY)
     Dates: start: 20231002
  12. Progynova ts [Concomitant]
     Indication: Ill-defined disorder
     Dosage: 1 DOSAGE FORM, QW (APPLY ONE WEEKLY)
     Dates: start: 20231002
  13. ZOPICLONE [Concomitant]
     Active Substance: ZOPICLONE
     Indication: Insomnia
     Dosage: 1 DOSAGE FORM, PM (TAKE ONE AT NIGHT AS NEEDED FOR SLEEP)
     Dates: start: 20231002
  14. ZOPICLONE [Concomitant]
     Active Substance: ZOPICLONE
     Indication: Ill-defined disorder
  15. OLODATEROL HYDROCHLORIDE\TIOTROPIUM BROMIDE MONOHYDRATE [Concomitant]
     Active Substance: OLODATEROL HYDROCHLORIDE\TIOTROPIUM BROMIDE MONOHYDRATE
     Indication: Ill-defined disorder
     Dosage: 2 DOSAGE FORM, BID (TWO PUFFS ONCE DAILY)
     Dates: start: 20231229
  16. ATORVASTATIN [Concomitant]
     Active Substance: ATORVASTATIN
     Indication: Ill-defined disorder
     Dosage: 1 DOSAGE FORM, QD (TAKE ONE DAILY)
     Dates: start: 20240405, end: 20250212
  17. IBUPROFEN [Concomitant]
     Active Substance: IBUPROFEN
     Indication: Ill-defined disorder
     Dosage: UNK, QD (APPLY 3-4 TIMES/DAY)
     Dates: start: 20241114, end: 20250113
  18. LANSOPRAZOLE [Concomitant]
     Active Substance: LANSOPRAZOLE
     Indication: Ill-defined disorder
     Dosage: 1 DOSAGE FORM, QD (TAKE ONE ONCE DAILY)
     Dates: start: 20241114
  19. EUMOVATE [Concomitant]
     Active Substance: CLOBETASONE BUTYRATE
     Indication: Ill-defined disorder
     Dosage: UNK, QD (APPLY 1-2 TIMES/DAY)
     Dates: start: 20250113
  20. ESOMEPRAZOLE [Concomitant]
     Active Substance: ESOMEPRAZOLE
     Indication: Ill-defined disorder
     Dosage: 1 DOSAGE FORM, QD (TAKE ONE DAILY)
     Dates: start: 20250120, end: 20250212
  21. MOMETASONE [Concomitant]
     Active Substance: MOMETASONE
     Indication: Ill-defined disorder
     Dosage: UNK, QD (APPLY DAILY)
     Dates: start: 20250203
  22. INCLISIRAN [Concomitant]
     Active Substance: INCLISIRAN
     Indication: Ill-defined disorder

REACTIONS (1)
  - Lip swelling [Recovered/Resolved]
